FAERS Safety Report 25094029 (Version 1)
Quarter: 2025Q1

REPORT INFORMATION
  Report Type: Spontaneous
  Country: KR (occurrence: KR)
  Receive Date: 20250319
  Receipt Date: 20250319
  Transmission Date: 20250409
  Serious: Yes (Hospitalization, Other)
  Sender: CELLTRION
  Company Number: KR-CELLTRION INC.-2025KR008424

PATIENT

DRUGS (4)
  1. YUFLYMA [Suspect]
     Active Substance: ADALIMUMAB-AATY
     Indication: Ankylosing spondylitis
     Route: 058
     Dates: start: 20250315
  2. YUFLYMA [Suspect]
     Active Substance: ADALIMUMAB-AATY
     Route: 058
     Dates: start: 20240930, end: 20250215
  3. NABUMETONE [Concomitant]
     Active Substance: NABUMETONE
     Indication: Ankylosing spondylitis
     Route: 048
     Dates: start: 20140206
  4. EPERISONE [Concomitant]
     Active Substance: EPERISONE
     Indication: Ankylosing spondylitis
     Route: 048
     Dates: start: 20230713

REACTIONS (2)
  - Cholecystectomy [Recovered/Resolved]
  - Intentional dose omission [Unknown]

NARRATIVE: CASE EVENT DATE: 20250301
